FAERS Safety Report 24291613 (Version 1)
Quarter: 2024Q3

REPORT INFORMATION
  Report Type: Spontaneous
  Country: US (occurrence: None)
  Receive Date: 20240906
  Receipt Date: 20240906
  Transmission Date: 20241017
  Serious: No
  Sender: DOMPE FARMACEUTICI
  Company Number: US-FARMAPROD-202310-2920

PATIENT
  Age: 76 Year
  Sex: Female

DRUGS (19)
  1. OXERVATE [Suspect]
     Active Substance: CENEGERMIN-BKBJ
     Indication: Neurotrophic keratopathy
     Route: 047
     Dates: start: 20230927
  2. OXERVATE [Suspect]
     Active Substance: CENEGERMIN-BKBJ
  3. ARTIFICIAL TEARS [Concomitant]
  4. TYRVAYA [Concomitant]
     Active Substance: VARENICLINE TARTRATE
     Dosage: 0.03 SPRAY
  5. RESTASIS [Concomitant]
     Active Substance: CYCLOSPORINE
  6. ASPIRIN [Concomitant]
     Active Substance: ASPIRIN
  7. METHYLPHENIDATE [Concomitant]
     Active Substance: METHYLPHENIDATE
     Dosage: 24 HOURS
  8. CETIRIZINE HCL [Concomitant]
     Active Substance: CETIRIZINE HYDROCHLORIDE
  9. TRAZODONE HCL [Concomitant]
     Active Substance: TRAZODONE HYDROCHLORIDE
  10. ESCITALOPRAM OXALATE [Concomitant]
     Active Substance: ESCITALOPRAM OXALATE
  11. FLUTICASONE PROPIONATE [Concomitant]
     Active Substance: FLUTICASONE PROPIONATE
     Dosage: HYDROFLUOROALKANE
  12. METOPROLOL SUCCINATE [Concomitant]
     Active Substance: METOPROLOL SUCCINATE
     Dosage: FOR 24 HOURS
  13. DILTIAZEM [Concomitant]
     Active Substance: DILTIAZEM
     Dosage: 24 HOURS
  14. METHIMAZOLE [Concomitant]
     Active Substance: METHIMAZOLE
  15. LISINOPRIL [Concomitant]
     Active Substance: LISINOPRIL
  16. SODIUM FLUORIDE [Concomitant]
     Active Substance: SODIUM FLUORIDE\SODIUM MONOFLUOROPHOSPHATE
  17. VITAMIN D3 [Concomitant]
     Active Substance: CHOLECALCIFEROL
  18. TOPROL XL [Concomitant]
     Active Substance: METOPROLOL SUCCINATE
  19. VALACYCLOVIR [Concomitant]
     Active Substance: VALACYCLOVIR HYDROCHLORIDE

REACTIONS (4)
  - Periorbital pain [Unknown]
  - Device use issue [Unknown]
  - Accidental overdose [Unknown]
  - Eye pain [Not Recovered/Not Resolved]

NARRATIVE: CASE EVENT DATE: 20230901
